FAERS Safety Report 19032079 (Version 1)
Quarter: 2021Q1

REPORT INFORMATION
  Report Type: Spontaneous
  Country: ZA (occurrence: ZA)
  Receive Date: 20210319
  Receipt Date: 20210319
  Transmission Date: 20210420
  Serious: Yes (Death)
  Sender: FDA-Public Use
  Company Number: ZA-NOVOPROD-794524

PATIENT
  Age: 76 Year
  Sex: Female

DRUGS (3)
  1. TETRALYSAL [LYMECYCLINE] [Concomitant]
     Active Substance: LYMECYCLINE
     Indication: ACNE
     Dosage: 300 MG
     Route: 048
     Dates: end: 202102
  2. ESTROFEM (ESTRADIOL HEMIHYDRATE) [Suspect]
     Active Substance: ESTRADIOL HEMIHYDRATE
     Indication: HORMONE THERAPY
     Dosage: 2 MG
     Route: 048
     Dates: end: 202102
  3. SPIRACTIN [SPIRONOLACTONE] [Concomitant]
     Active Substance: SPIRONOLACTONE
     Indication: HYPERTENSION
     Dosage: 25 MG
     Route: 048
     Dates: end: 202102

REACTIONS (1)
  - Death [Fatal]
